FAERS Safety Report 6681028-8 (Version None)
Quarter: 2010Q2

REPORT INFORMATION
  Report Type: 
  Country: None (occurrence: None)
  Receive Date: 20100414
  Receipt Date: 20100405
  Transmission Date: 20101027
  Serious: Yes (Other)
  Sender: FDA-Public Use
  Company Number: US-JNJFOC-20091003285

PATIENT
  Sex: Male
  Weight: 5.56 kg

DRUGS (2)
  1. CHILDREN'S TYLENOL LIQUID DYE FREE CHERRY [Suspect]
     Indication: TEETHING
     Route: 048
  2. CHILDREN'S TYLENOL LIQUID DYE FREE CHERRY [Suspect]
     Indication: PYREXIA
     Route: 048

REACTIONS (4)
  - GASTROENTERITIS BACTERIAL [None]
  - IRRITABILITY [None]
  - RASH MACULO-PAPULAR [None]
  - TRANSMISSION OF AN INFECTIOUS AGENT VIA A MEDICINAL PRODUCT [None]
